FAERS Safety Report 4441035-2 (Version None)
Quarter: 2004Q3

REPORT INFORMATION
  Report Type: 
  Country: None (occurrence: None)
  Receive Date: 20040830
  Receipt Date: 20030822
  Transmission Date: 20050211
  Serious: Yes (Hospitalization)
  Sender: FDA-Public Use
  Company Number: 229139

PATIENT
  Age: 73 Year
  Sex: Female
  Weight: 64.8 kg

DRUGS (2)
  1. NOVOLIN 70/30 [Suspect]
     Indication: INSULIN-REQUIRING TYPE II DIABETES MELLITUS
     Dosage: SLIDING SCALE, SUBCUTANEOUS
     Route: 058
     Dates: start: 19850101
  2. NOVOPEN 1.5 (INSULIN DELIVERY DEVICE) [Concomitant]

REACTIONS (1)
  - BLOOD GLUCOSE DECREASED [None]
